FAERS Safety Report 14168456 (Version 1)
Quarter: 2017Q4

REPORT INFORMATION
  Report Type: Spontaneous
  Country: US (occurrence: None)
  Receive Date: 20171107
  Receipt Date: 20171107
  Transmission Date: 20180321
  Serious: Yes (Hospitalization)
  Sender: FDA-Public Use
  Company Number: None

PATIENT
  Age: 74 Year
  Sex: Male
  Weight: 69.4 kg

DRUGS (2)
  1. ERBITUX [Suspect]
     Active Substance: CETUXIMAB
     Dates: end: 20160122
  2. TAXOTERE [Suspect]
     Active Substance: DOCETAXEL
     Dates: end: 20160112

REACTIONS (3)
  - Dehydration [None]
  - Oropharyngeal pain [None]
  - Failure to thrive [None]

NARRATIVE: CASE EVENT DATE: 20160122
